FAERS Safety Report 4317774-0 (Version None)
Quarter: 2004Q1

REPORT INFORMATION
  Report Type: 
  Country: None (occurrence: None)
  Receive Date: 20040312
  Receipt Date: 20040310
  Transmission Date: 20041129
  Serious: Yes (Other)
  Sender: FDA-Public Use
  Company Number: MYVW-PR-0403S-0044

PATIENT
  Sex: Female

DRUGS (3)
  1. MYOVIEW [Suspect]
     Dosage: SINGLE DOSE, I.V.
     Route: 042
  2. TECHNETIUM TC 99M GENERATOR [Concomitant]
  3. USPECIFIED PHARMACOLOGIC STRESS AGENT [Concomitant]

REACTIONS (1)
  - DEEP VEIN THROMBOSIS [None]
